FAERS Safety Report 24796329 (Version 2)
Quarter: 2025Q3

REPORT INFORMATION
  Report Type: Spontaneous
  Country: US (occurrence: US)
  Receive Date: 20250101
  Receipt Date: 20250810
  Transmission Date: 20251020
  Serious: No
  Sender: ALEXION PHARMACEUTICALS
  Company Number: US-AstraZeneca-CH-00776644A

PATIENT

DRUGS (2)
  1. FASLODEX [Suspect]
     Active Substance: FULVESTRANT
     Route: 065
  2. FASLODEX [Suspect]
     Active Substance: FULVESTRANT

REACTIONS (6)
  - Inappropriate schedule of product administration [Unknown]
  - Anxiety [Unknown]
  - Injection site discomfort [Unknown]
  - Neuralgia [Unknown]
  - Gait disturbance [Unknown]
  - Myalgia [Unknown]
